FAERS Safety Report 7867777-4 (Version None)
Quarter: 2011Q4

REPORT INFORMATION
  Report Type: 
  Country: None (occurrence: None)
  Receive Date: 20111028
  Receipt Date: 20111019
  Transmission Date: 20120403
  Serious: Yes (Hospitalization)
  Sender: FDA-Public Use
  Company Number: BR-ASTRAZENECA-2011SE63654

PATIENT
  Age: 65 Year
  Sex: Female
  Weight: 80 kg

DRUGS (4)
  1. OMEPRAZOLE [Suspect]
     Indication: HIATUS HERNIA
     Route: 048
     Dates: start: 19960101
  2. SYMBICORT [Suspect]
     Indication: ASTHMA
     Dosage: 160/4.5 MCG, BID
     Route: 055
     Dates: start: 20060101, end: 20100101
  3. DIURETIC (UNKNOWN) [Concomitant]
     Indication: HYPERTENSION
     Route: 048
  4. METHYLDOPA [Concomitant]
     Indication: HYPERTENSION
     Route: 048

REACTIONS (5)
  - SJOGREN'S SYNDROME [None]
  - ASTHMA [None]
  - POLYNEUROPATHY [None]
  - BREAST CANCER [None]
  - GLAUCOMA [None]
